FAERS Safety Report 5289161-2 (Version None)
Quarter: 2007Q1

REPORT INFORMATION
  Report Type: 
  Country: None (occurrence: None)
  Receive Date: 20070124
  Receipt Date: 20060912
  Transmission Date: 20070707
  Serious: Yes (Hospitalization)
  Sender: FDA-Public Use
  Company Number: E2020-00450-SPO-US

PATIENT
  Age: 83 Year
  Sex: Male

DRUGS (3)
  1. ARICEPT [Suspect]
     Indication: DEMENTIA ALZHEIMER'S TYPE
     Dosage: 5 MG, 1 IN 1 D, ORAL
     Route: 048
     Dates: start: 20060401, end: 20060516
  2. COUMADIN [Concomitant]
  3. ATENOLOL [Concomitant]

REACTIONS (1)
  - PNEUMONIA [None]
